FAERS Safety Report 16828138 (Version 4)
Quarter: 2020Q3

REPORT INFORMATION
  Report Type: Spontaneous
  Country: US (occurrence: US)
  Receive Date: 20190919
  Receipt Date: 20200929
  Transmission Date: 20201102
  Serious: Yes (Other)
  Sender: FDA-Public Use
  Company Number: US-GILEAD-2019-0428525

PATIENT
  Age: 52 Year
  Sex: Male

DRUGS (4)
  1. DESCOVY [Concomitant]
     Active Substance: EMTRICITABINE\TENOFOVIR ALAFENAMIDE FUMARATE
     Indication: HIV INFECTION
  2. VIREAD [Suspect]
     Active Substance: TENOFOVIR DISOPROXIL FUMARATE
     Indication: HIV INFECTION
     Dosage: UNK
     Route: 048
     Dates: start: 2011, end: 2012
  3. BIKTARVY [Concomitant]
     Active Substance: BICTEGRAVIR SODIUM\EMTRICITABINE\TENOFOVIR ALAFENAMIDE FUMARATE
     Indication: HIV INFECTION
  4. VIREAD [Suspect]
     Active Substance: TENOFOVIR DISOPROXIL FUMARATE
     Indication: ACQUIRED IMMUNODEFICIENCY SYNDROME

REACTIONS (26)
  - Renal failure [Unknown]
  - Spinal osteoarthritis [Not Recovered/Not Resolved]
  - Blood albumin decreased [Not Recovered/Not Resolved]
  - Emotional distress [Not Recovered/Not Resolved]
  - Pain [Not Recovered/Not Resolved]
  - Arthralgia [Not Recovered/Not Resolved]
  - Osteopenia [Not Recovered/Not Resolved]
  - Vitamin D deficiency [Not Recovered/Not Resolved]
  - Osteonecrosis [Unknown]
  - Anhedonia [Not Recovered/Not Resolved]
  - Back pain [Not Recovered/Not Resolved]
  - Bone loss [Unknown]
  - Chronic kidney disease [Not Recovered/Not Resolved]
  - Fracture [Not Recovered/Not Resolved]
  - Osteoporosis [Not Recovered/Not Resolved]
  - Intervertebral disc degeneration [Not Recovered/Not Resolved]
  - Nephropathy [Unknown]
  - Sacroiliitis [Unknown]
  - Arthritis [Not Recovered/Not Resolved]
  - Pain in extremity [Not Recovered/Not Resolved]
  - Bone density decreased [Unknown]
  - Economic problem [Not Recovered/Not Resolved]
  - Spondylolisthesis [Not Recovered/Not Resolved]
  - Calcium deficiency [Not Recovered/Not Resolved]
  - Sciatica [Not Recovered/Not Resolved]
  - Anxiety [Not Recovered/Not Resolved]

NARRATIVE: CASE EVENT DATE: 20180716
